FAERS Safety Report 20669415 (Version 4)
Quarter: 2022Q2

REPORT INFORMATION
  Report Type: Report from Study
  Country: US (occurrence: US)
  Receive Date: 20220404
  Receipt Date: 20220509
  Transmission Date: 20220721
  Serious: No
  Sender: FDA-Public Use
  Company Number: US-NOVARTISTESTPH-NVSC2022US075443

PATIENT
  Sex: Female

DRUGS (1)
  1. GILENYA [Suspect]
     Active Substance: FINGOLIMOD HYDROCHLORIDE
     Indication: Product used for unknown indication
     Dosage: UNK
     Route: 065
     Dates: start: 20211101, end: 202111

REACTIONS (5)
  - Gait disturbance [Unknown]
  - Speech disorder [Unknown]
  - Sleep disorder [Unknown]
  - Musculoskeletal disorder [Unknown]
  - White blood cell count decreased [Unknown]
